FAERS Safety Report 8771475 (Version 1)
Quarter: 2012Q4

REPORT INFORMATION
  Report Type: 
  Country: FR (occurrence: FR)
  Receive Date: 20120906
  Receipt Date: 20120906
  Transmission Date: 20130627
  Serious: Yes (Hospitalization)
  Sender: FDA-Public Use
  Company Number: FR-GLAXOSMITHKLINE-B0825626A

PATIENT
  Sex: Female

DRUGS (5)
  1. DEROXAT [Suspect]
     Indication: PRODUCT USED FOR UNKNOWN INDICATION
     Route: 048
     Dates: end: 201207
  2. TRIATEC [Suspect]
     Indication: PRODUCT USED FOR UNKNOWN INDICATION
     Route: 048
     Dates: end: 201207
  3. KARDEGIC [Concomitant]
     Route: 065
  4. INEXIUM [Concomitant]
     Route: 065
  5. CACIT D3 [Concomitant]
     Route: 065

REACTIONS (7)
  - Myoclonus [Recovered/Resolved]
  - Encephalopathy [Unknown]
  - Agitation [Unknown]
  - Somnolence [Unknown]
  - Vomiting [None]
  - Faecaloma [None]
  - Cardiac flutter [None]
